FAERS Safety Report 21340676 (Version 5)
Quarter: 2022Q4

REPORT INFORMATION
  Report Type: Other
  Country: JP (occurrence: JP)
  Receive Date: 20220916
  Receipt Date: 20221018
  Transmission Date: 20230113
  Serious: Yes (Other)
  Sender: FDA-Public Use
  Company Number: JP-CHUGAI-2022035303

PATIENT
  Age: 77 Year
  Sex: Male
  Weight: 66.2 kg

DRUGS (3)
  1. ATEZOLIZUMAB [Suspect]
     Active Substance: ATEZOLIZUMAB
     Indication: Non-small cell lung cancer
     Dosage: 1200 MILLIGRAM, SINGLE,
     Route: 041
     Dates: start: 20210517, end: 20210517
  2. CARBOPLATIN [Concomitant]
     Active Substance: CARBOPLATIN
     Indication: Non-small cell lung cancer
     Dosage: 320 MILLIGRAM, SINGLE
     Route: 041
     Dates: start: 20210517, end: 20210517
  3. PACLITAXEL [Concomitant]
     Active Substance: PACLITAXEL
     Indication: Non-small cell lung cancer
     Dosage: 170 MILLIGRAM
     Route: 041
     Dates: start: 20210517, end: 20210531

REACTIONS (3)
  - Enterocolitis [Not Recovered/Not Resolved]
  - Myositis [Not Recovered/Not Resolved]
  - Haemophagocytic lymphohistiocytosis [Not Recovered/Not Resolved]

NARRATIVE: CASE EVENT DATE: 20210603
